APPROVED DRUG PRODUCT: DECLOMYCIN
Active Ingredient: DEMECLOCYCLINE HYDROCHLORIDE
Strength: 300MG **Federal Register determination that product was not discontinued or withdrawn for safety or effectiveness reasons**
Dosage Form/Route: TABLET;ORAL
Application: N050261 | Product #003
Applicant: COREPHARMA LLC
Approved: Approved Prior to Jan 1, 1982 | RLD: No | RS: No | Type: DISCN